FAERS Safety Report 20980639 (Version 1)
Quarter: 2022Q2

REPORT INFORMATION
  Report Type: Spontaneous
  Country: VE (occurrence: VE)
  Receive Date: 20220620
  Receipt Date: 20220620
  Transmission Date: 20220721
  Serious: Yes (Other)
  Sender: FDA-Public Use
  Company Number: VE-NOVARTISPH-PHHY2018VE168320

PATIENT
  Sex: Female

DRUGS (1)
  1. GLIVEC [Suspect]
     Active Substance: IMATINIB MESYLATE
     Indication: Chronic myeloid leukaemia
     Dosage: 400 MG, UNK (4 X 100 MG TABLETS)
     Route: 065

REACTIONS (4)
  - Abscess [Unknown]
  - Swelling face [Unknown]
  - Malaise [Unknown]
  - Facial pain [Unknown]
